FAERS Safety Report 25603990 (Version 8)
Quarter: 2025Q4

REPORT INFORMATION
  Report Type: Report from Study
  Country: TH (occurrence: TH)
  Receive Date: 20250725
  Receipt Date: 20251231
  Transmission Date: 20260117
  Serious: Yes (Death, Hospitalization, Other)
  Sender: EXELIXIS
  Company Number: TH-IPSEN Group, Research and Development-2025-17554

PATIENT
  Age: 55 Year
  Sex: Female

DRUGS (2)
  1. CABOMETYX [Suspect]
     Active Substance: CABOZANTINIB S-MALATE
     Indication: Renal cell carcinoma
     Dosage: 40 MG, QD
     Route: 048
     Dates: start: 20250617
  2. CABOMETYX [Suspect]
     Active Substance: CABOZANTINIB S-MALATE
     Dosage: 40 MG EVERY OTHER DAY
     Route: 048
     Dates: start: 20250930, end: 202511

REACTIONS (11)
  - Urinary tract infection [Unknown]
  - Oral mucosal eruption [Unknown]
  - Fatigue [Unknown]
  - Decreased appetite [Unknown]
  - Rash [Unknown]
  - Decubitus ulcer [Recovering/Resolving]
  - Infection [Unknown]
  - Malignant neoplasm progression [Fatal]
  - Metastases to central nervous system [Unknown]
  - Off label use [Unknown]
  - Off label use [Unknown]

NARRATIVE: CASE EVENT DATE: 20250617
